FAERS Safety Report 26214003 (Version 1)
Quarter: 2025Q4

REPORT INFORMATION
  Report Type: Spontaneous
  Country: BR (occurrence: BR)
  Receive Date: 20251230
  Receipt Date: 20251230
  Transmission Date: 20260118
  Serious: Yes (Other)
  Sender: BAYER HEALTHCARE PHARMACEUTICALS INC.
  Company Number: BR-BAYER-2025A169196

PATIENT
  Age: 71 Year
  Sex: Female

DRUGS (2)
  1. FINERENONE [Suspect]
     Active Substance: FINERENONE
     Dosage: 10 MG
     Dates: start: 20251212
  2. ALLOPURINOL [Suspect]
     Active Substance: ALLOPURINOL
     Indication: Diabetes mellitus

REACTIONS (5)
  - Neuropathy peripheral [None]
  - Pruritus [None]
  - Blood uric acid abnormal [None]
  - Hypertension [None]
  - Depression [None]

NARRATIVE: CASE EVENT DATE: 20251201
